FAERS Safety Report 24987211 (Version 1)
Quarter: 2025Q1

REPORT INFORMATION
  Report Type: Spontaneous
  Country: US (occurrence: None)
  Receive Date: 20250219
  Receipt Date: 20250219
  Transmission Date: 20250408
  Serious: Yes (Life-Threatening, Hospitalization, Disabling)
  Sender: FDA-CTU
  Company Number: None

PATIENT
  Age: 55 Year
  Sex: Female
  Weight: 65.7 kg

DRUGS (8)
  1. IVERMECTIN [Suspect]
     Active Substance: IVERMECTIN
     Indication: Rosacea
     Dosage: OTHER QUANTITY : 1 PEA SIZE TO AREA;?FREQUENCY : DAILY;?
     Route: 061
     Dates: start: 20250121, end: 20250213
  2. METOPROLOL [Concomitant]
     Active Substance: METOPROLOL
  3. AMITRIPTYLINE [Concomitant]
     Active Substance: AMITRIPTYLINE
  4. GABAPENTIN [Concomitant]
     Active Substance: GABAPENTIN
  5. ASPIRIN [Concomitant]
     Active Substance: ASPIRIN
  6. PLAVIX [Concomitant]
     Active Substance: CLOPIDOGREL BISULFATE
  7. LINZESS [Concomitant]
     Active Substance: LINACLOTIDE
  8. NAPROXEN [Concomitant]
     Active Substance: NAPROXEN

REACTIONS (3)
  - Toothache [None]
  - Acute myocardial infarction [None]
  - Coronary artery dissection [None]

NARRATIVE: CASE EVENT DATE: 20250212
